FAERS Safety Report 15862246 (Version 1)
Quarter: 2019Q1

REPORT INFORMATION
  Report Type: Report from Study
  Country: US (occurrence: US)
  Receive Date: 20190124
  Receipt Date: 20190124
  Transmission Date: 20190417
  Serious: Yes (Hospitalization)
  Sender: FDA-Public Use
  Company Number: US-BAUSCH-BL-2019-001226

PATIENT
  Age: 61 Year
  Sex: Male
  Weight: 66.28 kg

DRUGS (1)
  1. XIFAXAN [Suspect]
     Active Substance: RIFAXIMIN
     Indication: HEPATIC ENCEPHALOPATHY
     Dosage: STARTED: ABOUT 1 YEAR AGO
     Route: 048

REACTIONS (2)
  - Hospitalisation [Not Recovered/Not Resolved]
  - Abdominal pain [Recovered/Resolved]

NARRATIVE: CASE EVENT DATE: 201901
